FAERS Safety Report 12821918 (Version 1)
Quarter: 2016Q4

REPORT INFORMATION
  Report Type: Spontaneous
  Country: FR (occurrence: FR)
  Receive Date: 20161007
  Receipt Date: 20161007
  Transmission Date: 20170207
  Serious: Yes (Hospitalization)
  Sender: FDA-Public Use
  Company Number: FR-PFIZER INC-2016462431

PATIENT
  Age: 70 Year
  Sex: Male

DRUGS (9)
  1. XENETIX [Interacting]
     Active Substance: IOBITRIDOL
     Dosage: 135 ML, UNK
     Route: 042
     Dates: start: 20150715, end: 20150715
  2. XENETIX [Interacting]
     Active Substance: IOBITRIDOL
     Dosage: 140 ML, UNK
     Route: 042
     Dates: start: 20150812, end: 20150812
  3. XENETIX [Interacting]
     Active Substance: IOBITRIDOL
     Dosage: 130 ML, UNK (ONCE)
     Route: 042
     Dates: start: 20160406, end: 20160406
  4. OMNIPAQUE [Interacting]
     Active Substance: IOHEXOL
     Dosage: 130 ML, UNK (ONCE)
     Route: 042
     Dates: start: 20151204, end: 20151204
  5. CORDARONE [Suspect]
     Active Substance: AMIODARONE HYDROCHLORIDE
     Indication: ATRIAL FIBRILLATION
     Dosage: 1 DF, DAILY (IN THE MORNING)
     Route: 048
     Dates: end: 20160409
  6. XENETIX [Interacting]
     Active Substance: IOBITRIDOL
     Dosage: 130 ML, UNK
     Route: 042
     Dates: start: 20160409, end: 20160409
  7. OMNIPAQUE [Interacting]
     Active Substance: IOHEXOL
     Dosage: 90 ML, UNK (ONCE)
     Route: 042
     Dates: start: 20151210, end: 20151210
  8. XENETIX [Interacting]
     Active Substance: IOBITRIDOL
     Dosage: 130 ML, UNK (ONCE)
     Route: 042
     Dates: start: 20160301, end: 20160301
  9. XENETIX [Interacting]
     Active Substance: IOBITRIDOL
     Dosage: 130 ML, UNK (ONCE)
     Route: 042
     Dates: start: 20150715, end: 20150715

REACTIONS (5)
  - Fall [Unknown]
  - Drug interaction [Not Recovered/Not Resolved]
  - Urinary tract infection [Unknown]
  - Hyperthyroidism [Not Recovered/Not Resolved]
  - Pneumonia klebsiella [Unknown]

NARRATIVE: CASE EVENT DATE: 20160407
